FAERS Safety Report 8065943-9 (Version None)
Quarter: 2012Q1

REPORT INFORMATION
  Report Type: 
  Country: None (occurrence: None)
  Receive Date: 20120124
  Receipt Date: 20120119
  Transmission Date: 20120608
  Serious: Yes (Other)
  Sender: FDA-Public Use
  Company Number: US-BAYER-200920330NA

PATIENT
  Age: 23 Year
  Sex: Female

DRUGS (2)
  1. BLOOD PRESSURE MEDICATION (NOS) [Concomitant]
  2. MIRENA [Suspect]
     Indication: CONTRACEPTION
     Dosage: 20 MCG/24HR, CONT
     Route: 015
     Dates: start: 20060824

REACTIONS (19)
  - PELVIC INFECTION [None]
  - CONSTIPATION [None]
  - AMENORRHOEA [None]
  - ECTOPIC PREGNANCY [None]
  - NO ADVERSE EVENT [None]
  - POLYMENORRHOEA [None]
  - DEVICE DISLOCATION [None]
  - MIGRAINE [None]
  - FUNGAL INFECTION [None]
  - WEIGHT DECREASED [None]
  - BLOOD PRESSURE INCREASED [None]
  - ABDOMINAL PAIN [None]
  - SEXUALLY TRANSMITTED DISEASE [None]
  - ABDOMINAL PAIN UPPER [None]
  - PAIN [None]
  - MENSTRUATION DELAYED [None]
  - COMPLICATION OF DEVICE REMOVAL [None]
  - HEADACHE [None]
  - HYPERTENSION [None]
